FAERS Safety Report 4381712-5 (Version None)
Quarter: 2004Q2

REPORT INFORMATION
  Report Type: 
  Country: None (occurrence: None)
  Receive Date: 20040615
  Receipt Date: 20040601
  Transmission Date: 20050107
  Serious: Yes (Hospitalization)
  Sender: FDA-Public Use
  Company Number: 2004AP02346

PATIENT
  Age: 73 Year
  Sex: Female
  Weight: 52 kg

DRUGS (6)
  1. TENORMIN [Suspect]
     Indication: HYPERTENSION
     Dosage: 25 MG DAILY PO
     Route: 048
     Dates: start: 20031101, end: 20040223
  2. FLUITRAN [Suspect]
     Indication: HYPERTENSION
     Dosage: 0.5 MG DAILY PO
     Route: 048
     Dates: start: 20031101, end: 20040223
  3. NORVASC [Suspect]
     Indication: HYPERTENSION
     Dosage: 2.5 MG DAILY PO
     Route: 048
     Dates: start: 20010511, end: 20031106
  4. NORVASC [Suspect]
     Indication: HYPERTENSION
     Dosage: 2.5 MG DAILY PO
     Route: 048
     Dates: start: 20040225, end: 20040309
  5. BLOPRESS [Suspect]
     Indication: HYPERTENSION
     Dosage: 4 MG DAILY PO
     Route: 048
     Dates: start: 20031107, end: 20031101
  6. DEPAS [Concomitant]

REACTIONS (3)
  - CONDITION AGGRAVATED [None]
  - LYMPHOCYTE STIMULATION TEST POSITIVE [None]
  - TOXIC SKIN ERUPTION [None]
